FAERS Safety Report 19022231 (Version 1)
Quarter: 2021Q1

REPORT INFORMATION
  Report Type: Report from Study
  Country: None (occurrence: US)
  Receive Date: 20210318
  Receipt Date: 20210318
  Transmission Date: 20210420
  Serious: Yes (Other)
  Sender: FDA-Public Use
  Company Number: US-ABBVIE-21K-163-3814800-00

PATIENT
  Sex: Male

DRUGS (3)
  1. COVID?19 VACCINE NOS. [Suspect]
     Active Substance: COVID-19 VACCINE NOS
     Indication: COVID-19 IMMUNISATION
     Route: 030
  2. HUMIRA [Suspect]
     Active Substance: ADALIMUMAB
     Indication: HIDRADENITIS
     Dosage: CITRATE FREE
     Route: 058
  3. HUMIRA [Suspect]
     Active Substance: ADALIMUMAB
     Dosage: CITRATE FREE
     Route: 058

REACTIONS (7)
  - Abdominal discomfort [Recovered/Resolved]
  - Coronary artery occlusion [Recovered/Resolved]
  - Urticaria [Recovered/Resolved]
  - Acne [Not Recovered/Not Resolved]
  - Cold sweat [Recovered/Resolved]
  - Dizziness [Recovered/Resolved]
  - Cardiomegaly [Unknown]
